FAERS Safety Report 7642242-8 (Version None)
Quarter: 2011Q3

REPORT INFORMATION
  Report Type: 
  Country: None (occurrence: None)
  Receive Date: 20110728
  Receipt Date: 20110721
  Transmission Date: 20111222
  Serious: Yes (Other)
  Sender: FDA-Public Use
  Company Number: PHHY2011FR29937

PATIENT
  Sex: Female
  Weight: 56 kg

DRUGS (4)
  1. CLONAZEPAM [Concomitant]
     Indication: NEURALGIA
     Dosage: 10 DRP, DAILY
     Route: 048
     Dates: start: 20100110
  2. LYRICA [Concomitant]
     Indication: NEURALGIA
     Dosage: 150 MG, UNK
     Route: 048
     Dates: start: 20110401
  3. EXTAVIA [Suspect]
     Indication: MULTIPLE SCLEROSIS
     Dosage: 250 UG, 3 TIMES PER WEEK
     Dates: start: 20100720, end: 20110711
  4. CYMBALTA [Concomitant]
     Indication: NEURALGIA
     Dosage: 60 MG, UNK
     Route: 048
     Dates: start: 20100404

REACTIONS (8)
  - WEIGHT DECREASED [None]
  - ABDOMINAL PAIN [None]
  - INJECTION SITE ERYTHEMA [None]
  - DEPRESSION [None]
  - DIZZINESS [None]
  - HYPOAESTHESIA [None]
  - INJECTION SITE PAIN [None]
  - SKIN PLAQUE [None]
